FAERS Safety Report 10136169 (Version 2)
Quarter: 2014Q2

REPORT INFORMATION
  Report Type: Spontaneous
  Country: JP (occurrence: JP)
  Receive Date: 20140429
  Receipt Date: 20140508
  Transmission Date: 20141212
  Serious: Yes (Death)
  Sender: FDA-Public Use
  Company Number: JP-ROCHE-1386557

PATIENT
  Age: 83 Year
  Sex: Female
  Weight: 57 kg

DRUGS (5)
  1. BONVIVA [Suspect]
     Indication: OSTEOPOROSIS
     Route: 042
     Dates: start: 20131126, end: 20131126
  2. INFLUENZA HA VACCINE [Suspect]
     Indication: PRODUCT USED FOR UNKNOWN INDICATION
     Route: 058
     Dates: start: 20131126, end: 20131126
  3. WARFARIN [Concomitant]
     Indication: ATRIAL FIBRILLATION
     Dosage: MORNING
     Route: 048
     Dates: start: 20040405, end: 20131225
  4. BIOFERMIN T [Concomitant]
     Indication: GALLBLADDER OPERATION
     Dosage: AFTER THE SUPPER,  DRUG REPORTED AS ^BIOFERMIN^
     Route: 048
     Dates: start: 20110926, end: 20131225
  5. SELTOUCH [Concomitant]
     Indication: OSTEOPOROSIS
     Dosage: DOSAGE IS UNCERTAIN.
     Route: 061
     Dates: start: 20130827, end: 20131225

REACTIONS (2)
  - Interstitial lung disease [Fatal]
  - Constipation [Unknown]
